FAERS Safety Report 19355268 (Version 4)
Quarter: 2021Q3

REPORT INFORMATION
  Report Type: Report from Study
  Country: US (occurrence: US)
  Receive Date: 20210531
  Receipt Date: 20210823
  Transmission Date: 20211014
  Serious: No
  Sender: FDA-Public Use
  Company Number: NVSC2021US120059

PATIENT
  Sex: Male

DRUGS (2)
  1. COSENTYX [Suspect]
     Active Substance: SECUKINUMAB
     Dosage: 150 MG, QMO
     Route: 058
  2. COSENTYX [Suspect]
     Active Substance: SECUKINUMAB
     Indication: ANKYLOSING SPONDYLITIS
     Dosage: UNK
     Route: 065

REACTIONS (8)
  - Nervous system disorder [Unknown]
  - Drug ineffective [Unknown]
  - Pain [Unknown]
  - Product distribution issue [Unknown]
  - Arthritis [Unknown]
  - Hypersomnia [Unknown]
  - Inappropriate schedule of product administration [Unknown]
  - Lethargy [Unknown]
